FAERS Safety Report 12171406 (Version 1)
Quarter: 2016Q1

REPORT INFORMATION
  Report Type: Spontaneous
  Country: US (occurrence: None)
  Receive Date: 20160310
  Receipt Date: 20160310
  Transmission Date: 20160526
  Serious: Yes (Other)
  Sender: FDA-Public Use
  Company Number: None

PATIENT
  Age: 58 Year
  Sex: Female
  Weight: 83.46 kg

DRUGS (8)
  1. DOXEPIN 10 MG MYLAN PHARMACEUTICALS [Suspect]
     Active Substance: DOXEPIN
     Indication: CHRONIC FATIGUE SYNDROME
     Route: 048
     Dates: start: 20151227, end: 20160103
  2. ALEVE [Concomitant]
     Active Substance: NAPROXEN SODIUM
  3. IBUPROFEN. [Concomitant]
     Active Substance: IBUPROFEN
  4. HYDROXYZINE [Concomitant]
     Active Substance: HYDROXYZINE\HYDROXYZINE HYDROCHLORIDE
  5. ESZOPICLONE. [Concomitant]
     Active Substance: ESZOPICLONE
  6. DOXEPIN 10 MG MYLAN PHARMACEUTICALS [Suspect]
     Active Substance: DOXEPIN
     Indication: SLEEP DISORDER
     Route: 048
     Dates: start: 20151227, end: 20160103
  7. ESTRACE [Concomitant]
     Active Substance: ESTRADIOL
  8. METHYL B-12 [Concomitant]

REACTIONS (3)
  - Dyspepsia [None]
  - No therapeutic response [None]
  - Product quality issue [None]

NARRATIVE: CASE EVENT DATE: 20151227
